FAERS Safety Report 8140633-2 (Version None)
Quarter: 2012Q1

REPORT INFORMATION
  Report Type: 
  Country: None (occurrence: None)
  Receive Date: 20120216
  Receipt Date: 20120130
  Transmission Date: 20120608
  Serious: Yes (Hospitalization)
  Sender: FDA-Public Use
  Company Number: AT-PFIZER INC-2012038077

PATIENT
  Age: 57 Year
  Sex: Female
  Weight: 60 kg

DRUGS (3)
  1. MEXALEN [Concomitant]
     Dosage: 500 MG, AS NEEDED
  2. SERETIDE DISKUS FORTE [Concomitant]
     Dosage: 1 DF, 2X/DAY
     Route: 055
  3. SUTENT [Suspect]
     Indication: METASTATIC RENAL CELL CARCINOMA
     Dosage: 50 MG, CYCLIC (DAY 1-28, REPETITION DAY 43)
     Route: 048
     Dates: start: 20110912, end: 20120102

REACTIONS (2)
  - HYPOTHYROIDISM [None]
  - EXOPHTHALMOS [None]
